FAERS Safety Report 20785604 (Version 1)
Quarter: 2022Q2

REPORT INFORMATION
  Report Type: Spontaneous
  Country: US (occurrence: None)
  Receive Date: 20220504
  Receipt Date: 20220504
  Transmission Date: 20220721
  Serious: No
  Sender: FDA-Public Use
  Company Number: US-ROCHE-2680800

PATIENT
  Age: 37 Year
  Sex: Female
  Weight: 77.180 kg

DRUGS (13)
  1. OCREVUS [Suspect]
     Active Substance: OCRELIZUMAB
     Indication: Relapsing-remitting multiple sclerosis
     Dosage: ONGOING: YES
     Route: 042
     Dates: start: 202002
  2. VALIUM [Suspect]
     Active Substance: DIAZEPAM
     Indication: Tension headache
     Dosage: TABLET 2 MG, 1 TABLET AS NEEDED ORALLY, 3X/DAY, 30 DAYS, 90 REFILLS?ONGOING: YES
     Route: 048
  3. METHYLPHENIDATE [Concomitant]
     Active Substance: METHYLPHENIDATE
     Indication: Fatigue
     Dosage: ONGOING YES?EXTENDED RELEASE
     Route: 048
     Dates: start: 201908
  4. AMITRIPTYLINE [Concomitant]
     Active Substance: AMITRIPTYLINE
     Indication: Migraine
     Dosage: ONGOING YES
     Route: 048
     Dates: start: 201911
  5. OMEPRAZOLE [Concomitant]
     Active Substance: OMEPRAZOLE
     Indication: Gastrooesophageal reflux disease
     Dosage: ONGOING YES
     Route: 048
     Dates: start: 202003
  6. ENDOMETHAZONE [Concomitant]
     Indication: Migraine
     Dosage: ONGOING YES
     Route: 048
     Dates: start: 201909
  7. NARATRIPTAN [Concomitant]
     Active Substance: NARATRIPTAN HYDROCHLORIDE
     Indication: Migraine
     Dosage: ONGOING YES?1 TABLET AT ONSET OF HEADACHE, MAY REPEAT IN 2 HOURS IF NECESSARY. MAX DAILY DOSE, 2 TAB
     Route: 048
     Dates: start: 201911
  8. MELATONIN [Concomitant]
     Active Substance: MELATONIN
     Dosage: ONGOING YES
     Route: 048
     Dates: start: 201911
  9. PROBIOTIC BLEND [Concomitant]
     Dosage: ONGOING YES
     Route: 048
     Dates: start: 201810
  10. PANTOPRAZOLE SODIUM [Concomitant]
     Active Substance: PANTOPRAZOLE SODIUM
  11. MIRENA [Concomitant]
     Active Substance: LEVONORGESTREL
  12. INDOMETHACIN [Concomitant]
     Active Substance: INDOMETHACIN
     Dosage: 1 CAPSULE WITH FOOD OR MILK ORALLY EVERY 8 HOURS PRN
     Route: 048
  13. AMITRIPTYLINE [Concomitant]
     Active Substance: AMITRIPTYLINE
     Dosage: 2 TABLET AT BED TIME ORALLY ONCE A DAY
     Route: 048

REACTIONS (1)
  - Sluggishness [Not Recovered/Not Resolved]

NARRATIVE: CASE EVENT DATE: 20200801
